FAERS Safety Report 4872436-6 (Version None)
Quarter: 2005Q4

REPORT INFORMATION
  Report Type: 
  Country: None (occurrence: None)
  Receive Date: 20051201
  Receipt Date: 20050803
  Transmission Date: 20060501
  Serious: No
  Sender: FDA-Public Use
  Company Number: 2005PV000816

PATIENT
  Age: 32 Year
  Sex: Female
  Weight: 99.7913 kg

DRUGS (7)
  1. BYETTA [Suspect]
     Indication: DIABETES MELLITUS NON-INSULIN-DEPENDENT
     Dosage: 5 MCG;BID;SC
     Route: 058
     Dates: start: 20050701
  2. PAXIL [Concomitant]
  3. LIPITOR [Concomitant]
  4. BENAZEPRIL HCL [Concomitant]
  5. NIFUREX [Concomitant]
  6. GLUCOPHAGE [Concomitant]
  7. MULTIVITAMIN [Concomitant]

REACTIONS (4)
  - FEELING JITTERY [None]
  - HEADACHE [None]
  - INSOMNIA [None]
  - NAUSEA [None]
